FAERS Safety Report 16563399 (Version 3)
Quarter: 2019Q3

REPORT INFORMATION
  Report Type: Report from Study
  Country: IT (occurrence: IT)
  Receive Date: 20190712
  Receipt Date: 20190801
  Transmission Date: 20191004
  Serious: Yes (Hospitalization)
  Sender: FDA-Public Use
  Company Number: IT-AMGEN-ITACT2019109268

PATIENT
  Age: 70 Year
  Sex: Female
  Weight: 69 kg

DRUGS (29)
  1. RANITIDINE. [Concomitant]
     Active Substance: RANITIDINE
     Dosage: 150 MILLIGRAM
     Route: 048
     Dates: start: 20190508, end: 20190704
  2. MOVICOL [Concomitant]
     Active Substance: POLYETHYLENE GLYCOL 3350\POTASSIUM CHLORIDE\SODIUM BICARBONATE\SODIUM CHLORIDE
     Dosage: 1 UNK
     Route: 048
     Dates: start: 20190513, end: 20190516
  3. FOLINA [FOLIC ACID] [Concomitant]
     Active Substance: FOLIC ACID
     Dosage: 5 MILLIGRAM
     Route: 048
     Dates: start: 20190521, end: 20190530
  4. ACICLOVIR [Concomitant]
     Active Substance: ACYCLOVIR
     Dosage: 800 MILLIGRAM
     Route: 048
     Dates: start: 20130422
  5. BLINATUMOMAB [Suspect]
     Active Substance: BLINATUMOMAB
     Dosage: UNK (CYCLE 2)
     Route: 065
     Dates: start: 20190625
  6. ESOMEPRAZOLE. [Concomitant]
     Active Substance: ESOMEPRAZOLE MAGNESIUM
     Dosage: 40 MILLIGRAM
     Route: 048
     Dates: start: 20190424, end: 20190430
  7. PARACETAMOL [Concomitant]
     Active Substance: ACETAMINOPHEN
     Dosage: 1 UNK AND 1000 MILLIGRAM
     Dates: start: 20190504, end: 20190513
  8. BLINATUMOMAB [Suspect]
     Active Substance: BLINATUMOMAB
     Indication: NON-HODGKIN^S LYMPHOMA UNSPECIFIED HISTOLOGY INDOLENT
     Dosage: 28 MICROGRAM, QD
     Route: 042
     Dates: start: 20190416
  9. BLINATUMOMAB [Suspect]
     Active Substance: BLINATUMOMAB
     Dosage: 28 MICROGRAM, QD
     Route: 065
     Dates: start: 20190702, end: 20190705
  10. NEBIVOLOL. [Concomitant]
     Active Substance: NEBIVOLOL
     Dosage: 1.25 MILLIGRAM
     Route: 048
     Dates: start: 200806, end: 20190527
  11. ONDANSETRON [Concomitant]
     Active Substance: ONDANSETRON
     Dosage: 4 MILLIGRAM
     Dates: start: 20190501
  12. MYCOSTATIN [Concomitant]
     Active Substance: NYSTATIN
     Dosage: 1 UNK
     Route: 061
     Dates: start: 20190511, end: 20190710
  13. INSULIN [Concomitant]
     Active Substance: INSULIN NOS
     Dosage: 5 UNK
     Route: 058
     Dates: start: 20190612
  14. BACTRIM [Concomitant]
     Active Substance: SULFAMETHOXAZOLE\TRIMETHOPRIM
     Dosage: 1 UNK
     Route: 048
     Dates: start: 20190515
  15. POTASSIUM CANRENOATE [Concomitant]
     Active Substance: CANRENOATE POTASSIUM
     Dosage: 25 MILLIGRAM
     Route: 048
     Dates: start: 20181227, end: 20190430
  16. BLINATUMOMAB [Suspect]
     Active Substance: BLINATUMOMAB
     Dosage: 445 MICROGRAM
     Route: 058
     Dates: start: 20190520, end: 20190610
  17. DEXAMETHASONE. [Concomitant]
     Active Substance: DEXAMETHASONE
     Dosage: 08-96 GTT DROPS AND 2-20 MILLIGRAMS
     Dates: start: 20190416
  18. BISOPROLOL [Concomitant]
     Active Substance: BISOPROLOL
     Dosage: 1.25 MILLIGRAM
     Route: 048
     Dates: start: 20190528
  19. KEPPRA [Concomitant]
     Active Substance: LEVETIRACETAM
     Dosage: 500 MILLIGRAM
     Route: 048
     Dates: start: 20190415
  20. ENOXAPARIN [Concomitant]
     Active Substance: ENOXAPARIN
     Dosage: 4000-6000 UNK
     Route: 058
     Dates: start: 20190618
  21. IG VENA [Concomitant]
     Active Substance: HUMAN IMMUNOGLOBULIN G
     Dosage: 25 GRAM
     Route: 042
     Dates: start: 20140317
  22. FLUCONAZOLE. [Concomitant]
     Active Substance: FLUCONAZOLE
     Dosage: 100 MILLIGRAM
     Route: 048
     Dates: start: 20190430, end: 20190625
  23. LANSOPRAZOLE. [Concomitant]
     Active Substance: LANSOPRAZOLE
     Dosage: 30 MILLIGRAM
     Route: 048
     Dates: start: 20091001, end: 20190521
  24. HYDROCHLOROTHIAZIDE;OLMESARTAN MEDOXOMIL [Concomitant]
     Dosage: 1 UNK
     Route: 048
     Dates: start: 20181227
  25. BICARBONATE [Concomitant]
     Active Substance: SODIUM BICARBONATE
     Dosage: 1 UNK
     Dates: start: 20190511, end: 20190710
  26. RED BLOOD CELLS [Concomitant]
     Active Substance: HUMAN RED BLOOD CELL
     Dosage: 1 UNK
     Route: 042
     Dates: start: 20190625, end: 20190626
  27. GAVISCON [ALGELDRATE;SODIUM ALGINATE] [Concomitant]
     Dosage: 1 UNK
     Route: 048
     Dates: start: 20190524, end: 20190625
  28. LACTULOSE. [Concomitant]
     Active Substance: LACTULOSE
     Dosage: 2 UNK
     Route: 048
     Dates: start: 20190619
  29. MEPRAL [OMEPRAZOLE] [Concomitant]
     Dosage: 20 MILLIGRAM
     Route: 048
     Dates: start: 20190704, end: 20190710

REACTIONS (1)
  - Hemiparesis [Recovered/Resolved]

NARRATIVE: CASE EVENT DATE: 20190705
